FAERS Safety Report 18331577 (Version 12)
Quarter: 2021Q2

REPORT INFORMATION
  Report Type: Spontaneous
  Country: BR (occurrence: BR)
  Receive Date: 20200930
  Receipt Date: 20210611
  Transmission Date: 20210717
  Serious: Yes (Other)
  Sender: FDA-Public Use
  Company Number: BR-PFIZER INC-2020368230

PATIENT
  Age: 42 Year
  Sex: Female

DRUGS (2)
  1. GENOTROPIN [Suspect]
     Active Substance: SOMATROPIN
     Dosage: 0.3 MG
     Dates: start: 20200921
  2. GENOTROPIN [Suspect]
     Active Substance: SOMATROPIN
     Dosage: UNK
     Dates: start: 20200923

REACTIONS (9)
  - Device leakage [Unknown]
  - Asthenia [Unknown]
  - Device difficult to use [Unknown]
  - Drug ineffective [Unknown]
  - Incorrect dose administered by device [Unknown]
  - Poor quality device used [Unknown]
  - Injury associated with device [Unknown]
  - Subcutaneous drug absorption impaired [Unknown]
  - Product prescribing error [Unknown]

NARRATIVE: CASE EVENT DATE: 202009
